FAERS Safety Report 23447576 (Version 1)
Quarter: 2024Q1

REPORT INFORMATION
  Report Type: Spontaneous
  Country: US (occurrence: None)
  Receive Date: 20240126
  Receipt Date: 20240126
  Transmission Date: 20240410
  Serious: Yes (Death)
  Sender: FDA-Public Use
  Company Number: None

PATIENT
  Age: 81 Year
  Sex: Male
  Weight: 117 kg

DRUGS (16)
  1. JAKAFI [Suspect]
     Active Substance: RUXOLITINIB
     Indication: Polycythaemia vera
     Dosage: FREQUENCY : DAILY;?
     Route: 048
     Dates: start: 20180615, end: 20240112
  2. DIGOXIN [Concomitant]
     Active Substance: DIGOXIN
  3. FUROSEMIDE [Concomitant]
     Active Substance: FUROSEMIDE
  4. ACETAMINOPHEN [Concomitant]
     Active Substance: ACETAMINOPHEN
  5. HUMALOG KWIKPEN [Concomitant]
     Active Substance: INSULIN LISPRO
  6. LANTUS SOLOSTAR [Concomitant]
     Active Substance: INSULIN GLARGINE
  7. LISINOPRIL [Concomitant]
     Active Substance: LISINOPRIL
  8. LYRICA [Concomitant]
     Active Substance: PREGABALIN
  9. METFORMIN [Concomitant]
     Active Substance: METFORMIN HYDROCHLORIDE
  10. METOPROLOL SUCCINATE [Concomitant]
     Active Substance: METOPROLOL SUCCINATE
  11. ONE TOUCH ULTRA TEST STRIPS [Concomitant]
  12. PAROXETINE [Concomitant]
     Active Substance: PAROXETINE
  13. SIMVASTATIN [Concomitant]
     Active Substance: SIMVASTATIN
  14. SPIRONOLACTONE [Concomitant]
     Active Substance: SPIRONOLACTONE
  15. TAMSULOSIN [Concomitant]
     Active Substance: TAMSULOSIN
  16. WARFARIN [Concomitant]
     Active Substance: WARFARIN

REACTIONS (1)
  - Death [None]

NARRATIVE: CASE EVENT DATE: 20240112
